FAERS Safety Report 5477004-3 (Version None)
Quarter: 2007Q3

REPORT INFORMATION
  Report Type: 
  Country: None (occurrence: None)
  Receive Date: 20070831
  Receipt Date: 20070720
  Transmission Date: 20080115
  Serious: No
  Sender: FDA-Public Use
  Company Number: PHEH2007US08814

PATIENT
  Age: 8 Year
  Sex: Female
  Weight: 9.1 kg

DRUGS (1)
  1. EXJADE [Suspect]
     Indication: IRON OVERLOAD
     Dosage: 375 MG, QD, ORAL
     Route: 048
     Dates: start: 20070401, end: 20070524

REACTIONS (1)
  - ALOPECIA [None]
